FAERS Safety Report 5609147-5 (Version None)
Quarter: 2008Q1

REPORT INFORMATION
  Report Type: 
  Country: None (occurrence: None)
  Receive Date: 20080130
  Receipt Date: 20080130
  Transmission Date: 20080703
  Serious: No
  Sender: FDA-Public Use
  Company Number: None

PATIENT
  Age: 63 Year
  Sex: Female

DRUGS (4)
  1. MALARONE [Suspect]
     Dosage: PO QD
     Route: 048
  2. SYNTHROID [Concomitant]
  3. ESTRATEST [Concomitant]
  4. ENALAPRIL MALEATE [Concomitant]

REACTIONS (2)
  - RASH [None]
  - URTICARIA [None]
